FAERS Safety Report 9511687 (Version 1)
Quarter: 2013Q3

REPORT INFORMATION
  Report Type: Spontaneous
  Country: JP (occurrence: JP)
  Receive Date: 20130910
  Receipt Date: 20130910
  Transmission Date: 20140515
  Serious: Yes (Other)
  Sender: FDA-Public Use
  Company Number: JP-ASTELLAS-2013JP009283

PATIENT
  Age: 77 Year
  Sex: Female

DRUGS (1)
  1. VESICARE [Suspect]
     Dosage: 5 MG, UID/QD
     Route: 048
     Dates: start: 20120301

REACTIONS (2)
  - Cognitive disorder [Unknown]
  - Somnolence [Unknown]
